FAERS Safety Report 11951771 (Version 3)
Quarter: 2016Q1

REPORT INFORMATION
  Report Type: Spontaneous
  Country: CN (occurrence: CN)
  Receive Date: 20160125
  Receipt Date: 20160128
  Transmission Date: 20160526
  Serious: Yes (Hospitalization)
  Sender: FDA-Public Use
  Company Number: CN-009507513-1601CHN008173

PATIENT
  Age: 74 Year
  Sex: Female
  Weight: 50 kg

DRUGS (3)
  1. LIDOCAINE HYDROCHLORIDE. [Suspect]
     Active Substance: LIDOCAINE HYDROCHLORIDE
     Indication: HEADACHE
     Dosage: 5 ML, QD
     Route: 030
     Dates: start: 20150628, end: 20150628
  2. MI KE BAO [Suspect]
     Active Substance: METHYLCOBALAMIN
     Indication: HEADACHE
     Dosage: 2 ML, QD
     Route: 030
     Dates: start: 20150628, end: 20150628
  3. DIPROSPAN [Suspect]
     Active Substance: BETAMETHASONE DIPROPIONATE\BETAMETHASONE SODIUM PHOSPHATE
     Indication: HEADACHE
     Dosage: 1 ML, QD
     Route: 030
     Dates: start: 20150628, end: 20150628

REACTIONS (1)
  - Swelling face [Recovering/Resolving]

NARRATIVE: CASE EVENT DATE: 20150628
